FAERS Safety Report 7668709-4 (Version None)
Quarter: 2011Q3

REPORT INFORMATION
  Report Type: 
  Country: None (occurrence: None)
  Receive Date: 20110808
  Receipt Date: 20110727
  Transmission Date: 20111222
  Serious: Yes (Death, Hospitalization, Other)
  Sender: FDA-Public Use
  Company Number: FR-GENZYME-CLOF-1001725

PATIENT
  Sex: Female
  Weight: 55 kg

DRUGS (4)
  1. CYTARABINE [Suspect]
     Dosage: 1680 MG/2H, UNK
     Route: 042
     Dates: start: 20101116, end: 20101120
  2. CYTARABINE [Suspect]
     Indication: ACUTE MYELOID LEUKAEMIA
     Dosage: 1680 MG/2H, UNK
     Route: 042
     Dates: start: 20100927, end: 20101005
  3. EVOLTRA [Suspect]
     Dosage: 100 MG, UNK
     Route: 042
     Dates: start: 20101117, end: 20101119
  4. EVOLTRA [Suspect]
     Indication: ACUTE MYELOID LEUKAEMIA
     Dosage: 100 MG, UNK
     Route: 042
     Dates: start: 20100927, end: 20101005

REACTIONS (2)
  - TRANSPLANT FAILURE [None]
  - CYTOLYTIC HEPATITIS [None]
